FAERS Safety Report 23984352 (Version 1)
Quarter: 2024Q2

REPORT INFORMATION
  Report Type: Report from Study
  Country: US (occurrence: US)
  Receive Date: 20240618
  Receipt Date: 20240618
  Transmission Date: 20240716
  Serious: Yes (Hospitalization)
  Sender: FDA-Public Use
  Company Number: US-ABBVIE-5799705

PATIENT
  Age: 47 Year
  Sex: Female

DRUGS (11)
  1. BOTOX [Suspect]
     Active Substance: ONABOTULINUMTOXINA
     Indication: Torticollis
     Dosage: TIME INTERVAL: AS NECESSARY
     Route: 065
     Dates: start: 2021, end: 2021
  2. BACLOFEN [Concomitant]
     Active Substance: BACLOFEN
     Indication: Torticollis
     Dosage: START DATE TEXT: 2016 OR LATER
  3. DIAZEPAM [Concomitant]
     Active Substance: DIAZEPAM
     Indication: Muscle spasms
     Dosage: NIGHTLY?START DATE TEXT: 2016 OR LATER
     Route: 048
  4. LORTAB [Concomitant]
     Active Substance: ACETAMINOPHEN\HYDROCODONE BITARTRATE
     Indication: Product used for unknown indication
  5. PLAQUENIL [Concomitant]
     Active Substance: HYDROXYCHLOROQUINE SULFATE
     Indication: Product used for unknown indication
  6. AMANTADINE [Concomitant]
     Active Substance: AMANTADINE
     Indication: Torticollis
     Dosage: START DATE TEXT: 2016 OR LATER
  7. CARBAMAZEPINE [Concomitant]
     Active Substance: CARBAMAZEPINE
     Indication: Torticollis
     Dosage: START DATE TEXT: 2016 OR LATER
  8. GABAPENTIN [Concomitant]
     Active Substance: GABAPENTIN
     Indication: Torticollis
     Dosage: START DATE TEXT: 2016 OR LATER
     Route: 065
  9. FLEXERIL [Concomitant]
     Active Substance: CYCLOBENZAPRINE HYDROCHLORIDE
     Indication: Torticollis
     Dosage: START DATE TEXT: 2016 OR LATER
     Route: 065
  10. CARBIDOPA\LEVODOPA [Concomitant]
     Active Substance: CARBIDOPA\LEVODOPA
     Indication: Torticollis
     Dosage: START DATE TEXT: 2016 OR LATER
  11. ZANAFLEX [Concomitant]
     Active Substance: TIZANIDINE HYDROCHLORIDE
     Indication: Muscle spasms
     Dosage: NIGHTLY?START DATE TEXT: 2016 OR LATER
     Route: 048

REACTIONS (11)
  - Bacterial infection [Unknown]
  - Blood pressure decreased [Unknown]
  - Myalgia [Unknown]
  - Drug ineffective [Not Recovered/Not Resolved]
  - Back pain [Unknown]
  - Therapeutic response shortened [Not Recovered/Not Resolved]
  - Choking [Not Recovered/Not Resolved]
  - Syncope [Unknown]
  - Dysphagia [Not Recovered/Not Resolved]
  - Muscle discomfort [Unknown]
  - Illness [Unknown]

NARRATIVE: CASE EVENT DATE: 20210101
